FAERS Safety Report 8018375-3 (Version None)
Quarter: 2012Q1

REPORT INFORMATION
  Report Type: 
  Country: None (occurrence: None)
  Receive Date: 20120103
  Receipt Date: 20111228
  Transmission Date: 20120608
  Serious: Yes (Other)
  Sender: FDA-Public Use
  Company Number: GB-JNJFOC-20111101850

PATIENT
  Sex: Female
  Weight: 69 kg

DRUGS (1)
  1. NICORETTE [Suspect]
     Indication: PRODUCT USED FOR UNKNOWN INDICATION
     Dosage: ONE TO TWO SPRAYS AS NEEDED, WITH A MAX OF FOUR SPRAYS
     Route: 048
     Dates: start: 20110923, end: 20110101

REACTIONS (5)
  - LIP ULCERATION [None]
  - MOUTH ULCERATION [None]
  - TONGUE DISORDER [None]
  - SWOLLEN TONGUE [None]
  - DYSPNOEA [None]
